FAERS Safety Report 5486405-9 (Version None)
Quarter: 2007Q4

REPORT INFORMATION
  Report Type: 
  Country: None (occurrence: None)
  Receive Date: 20071012
  Receipt Date: 20070608
  Transmission Date: 20080405
  Serious: Yes (Disabling)
  Sender: FDA-Public Use
  Company Number: 2006VX000785

PATIENT
  Age: 42 Year
  Sex: Female
  Weight: 81.6475 kg

DRUGS (15)
  1. INTERFERON ALFACON-1 [Suspect]
     Indication: HEPATITIS C
     Dosage: 15 UG;QD;SC; 9 UG;QD;SC; 15 UG;QD;SC
     Route: 058
     Dates: end: 20061130
  2. INTERFERON ALFACON-1 [Suspect]
     Indication: HEPATITIS C
     Dosage: 15 UG;QD;SC; 9 UG;QD;SC; 15 UG;QD;SC
     Route: 058
  3. INTERFERON ALFACON-1 [Suspect]
     Indication: HEPATITIS C
     Dosage: 15 UG;QD;SC; 9 UG;QD;SC; 15 UG;QD;SC
     Route: 058
     Dates: start: 20051125
  4. RIBAVIRIN [Suspect]
     Dosage: 1000 MG;QD;PO; 600 MG;QD;PO; PO
     Route: 048
     Dates: start: 20051125, end: 20060801
  5. RIBAVIRIN [Suspect]
     Dosage: 1000 MG;QD;PO; 600 MG;QD;PO; PO
     Route: 048
     Dates: start: 20060801, end: 20060901
  6. RIBAVIRIN [Suspect]
     Dosage: 1000 MG;QD;PO; 600 MG;QD;PO; PO
     Route: 048
     Dates: start: 20061001, end: 20061130
  7. CELEXA [Concomitant]
  8. PROCRIT [Concomitant]
  9. RELPAX [Concomitant]
  10. VITAMIN CAP [Concomitant]
  11. IRON [Concomitant]
  12. HYDROXYCHLOROQUINE SULFATE [Concomitant]
  13. CALCIUM [Concomitant]
  14. POTASSIUM CHLORIDE [Concomitant]
  15. ELAVIL [Concomitant]

REACTIONS (10)
  - ABASIA [None]
  - BALANCE DISORDER [None]
  - FALL [None]
  - FATIGUE [None]
  - MEMORY IMPAIRMENT [None]
  - MIGRAINE [None]
  - MUSCLE FATIGUE [None]
  - MUSCULAR WEAKNESS [None]
  - PERNICIOUS ANAEMIA [None]
  - WHITE BLOOD CELL COUNT DECREASED [None]
